FAERS Safety Report 6403213-2 (Version None)
Quarter: 2009Q4

REPORT INFORMATION
  Report Type: 
  Country: None (occurrence: None)
  Receive Date: 20091015
  Receipt Date: 20091015
  Transmission Date: 20100525
  Serious: No
  Sender: FDA-Public Use
  Company Number: None

PATIENT
  Age: 80 Year
  Sex: Female
  Weight: 71.6683 kg

DRUGS (2)
  1. CLEOCIN [Suspect]
     Indication: INFECTION
     Dosage: 300 MG TID PO
     Route: 048
     Dates: start: 20091005, end: 20091012
  2. CLEOCIN [Suspect]
     Indication: JAW DISORDER
     Dosage: 300 MG TID PO
     Route: 048
     Dates: start: 20091005, end: 20091012

REACTIONS (6)
  - ASTHENIA [None]
  - DIZZINESS [None]
  - FATIGUE [None]
  - GASTRIC DISORDER [None]
  - HYPERSOMNIA [None]
  - MENTAL DISORDER [None]
